FAERS Safety Report 7749697-9 (Version None)
Quarter: 2011Q3

REPORT INFORMATION
  Report Type: 
  Country: None (occurrence: None)
  Receive Date: 20110914
  Receipt Date: 20110909
  Transmission Date: 20111222
  Serious: Yes (Death)
  Sender: FDA-Public Use
  Company Number: GW-ABBOTT-11P-071-0850081-00

PATIENT
  Sex: Female
  Weight: 58 kg

DRUGS (6)
  1. LAMIVUDINE [Concomitant]
     Indication: HIV INFECTION
     Route: 048
     Dates: start: 20110713
  2. METAMIZOLO SODICO [Concomitant]
     Indication: PRODUCT USED FOR UNKNOWN INDICATION
     Route: 048
     Dates: start: 20110712
  3. KALETRA [Suspect]
     Indication: HIV INFECTION
     Dosage: 200MG/50 MG 2 TAB BID
     Route: 048
     Dates: start: 20110713
  4. COTRIMAXAZOLE [Concomitant]
     Indication: PROPHYLAXIS
     Route: 048
     Dates: start: 20110712
  5. FERROUS SULFATE TAB [Concomitant]
     Indication: MINERAL SUPPLEMENTATION
     Route: 048
     Dates: start: 20110712
  6. ABACAVIR [Concomitant]
     Indication: HIV INFECTION
     Route: 048
     Dates: start: 20110713

REACTIONS (1)
  - OPPORTUNISTIC INFECTION [None]
